FAERS Safety Report 21808235 (Version 2)
Quarter: 2023Q1

REPORT INFORMATION
  Report Type: Report from Study
  Country: US (occurrence: US)
  Receive Date: 20230103
  Receipt Date: 20230310
  Transmission Date: 20230418
  Serious: Yes (Other)
  Sender: FDA-Public Use
  Company Number: US-002147023-NVSC2021US038502

PATIENT
  Age: 57 Year
  Sex: Male
  Weight: 77.111 kg

DRUGS (1)
  1. COSENTYX [Suspect]
     Active Substance: SECUKINUMAB
     Indication: Psoriasis
     Dosage: 300 MG/KG, QMO
     Route: 058
     Dates: start: 20221130

REACTIONS (2)
  - Throat cancer [Unknown]
  - Metastases to neck [Unknown]

NARRATIVE: CASE EVENT DATE: 20221130
